FAERS Safety Report 9377543 (Version 2)
Quarter: 2013Q3

REPORT INFORMATION
  Report Type: Spontaneous
  Country: NZ (occurrence: NZ)
  Receive Date: 20130701
  Receipt Date: 20130903
  Transmission Date: 20140515
  Serious: Yes (Death, Hospitalization, Other)
  Sender: FDA-Public Use
  Company Number: NZ-ELI_LILLY_AND_COMPANY-NZ201306009040

PATIENT
  Age: 68 Year
  Sex: Female

DRUGS (5)
  1. HUMALOG LISPRO [Suspect]
     Dosage: UNK, EACH MORNING
  2. HUMALOG 25% LISPRO, 75% NPL [Suspect]
  3. LANTUS [Concomitant]
  4. MICONAZOLE [Concomitant]
  5. AQUEOUS CREAM [Concomitant]

REACTIONS (5)
  - Subdural haemorrhage [Fatal]
  - Cerebrovascular accident [Unknown]
  - Fall [Unknown]
  - Hypoglycaemia [Recovered/Resolved]
  - Wrong drug administered [Recovered/Resolved]
